FAERS Safety Report 5984763-X (Version None)
Quarter: 2008Q4

REPORT INFORMATION
  Report Type: 
  Country: None (occurrence: None)
  Receive Date: 20081208
  Receipt Date: 20081203
  Transmission Date: 20090506
  Serious: Yes (Hospitalization)
  Sender: FDA-Public Use
  Company Number: US-KINGPHARMUSA00001-K200801182

PATIENT
  Age: 50 Year
  Sex: Female

DRUGS (7)
  1. ALTACE [Suspect]
     Route: 048
  2. MYOCRISIN [Suspect]
     Dosage: 10 MG, QD
     Route: 030
     Dates: start: 20080924, end: 20080924
  3. SIMVASTATIN [Suspect]
     Dosage: UNK
     Route: 048
  4. ATENOLOL [Suspect]
     Route: 048
  5. LANSOPRAZOLE [Concomitant]
     Route: 048
  6. PREDNISOLONE [Concomitant]
     Route: 048
  7. CODEINE PHOSPHATE [Concomitant]
     Route: 048

REACTIONS (18)
  - ALANINE AMINOTRANSFERASE INCREASED [None]
  - ASTHENIA [None]
  - C-REACTIVE PROTEIN INCREASED [None]
  - DIARRHOEA [None]
  - DRUG INTERACTION [None]
  - GLOMERULAR FILTRATION RATE DECREASED [None]
  - HEADACHE [None]
  - HYPOTENSION [None]
  - MALAISE [None]
  - MUSCULOSKELETAL STIFFNESS [None]
  - NAUSEA [None]
  - PLATELET COUNT DECREASED [None]
  - PYREXIA [None]
  - RASH [None]
  - RENAL FAILURE [None]
  - SHOCK [None]
  - SYNCOPE [None]
  - VOMITING [None]
